FAERS Safety Report 7292791-X (Version None)
Quarter: 2011Q1

REPORT INFORMATION
  Report Type: 
  Country: None (occurrence: None)
  Receive Date: 20110203
  Receipt Date: 20110121
  Transmission Date: 20110831
  Serious: No
  Sender: FDA-Public Use
  Company Number: 2011-00028

PATIENT
  Age: 72 Year
  Sex: Male
  Weight: 86.1834 kg

DRUGS (17)
  1. NIACIN [Concomitant]
  2. ZICAM COLD REMEDY NASAL GEL [Suspect]
     Dosage: Q 3-4 HRS, SPORADIC; ABOUT 2 YRS AGO 01/21/11
     Dates: end: 20110121
  3. FLUTICASONE [Concomitant]
  4. CARBIDOPA AND LEVODOPA [Concomitant]
  5. SIMVASTATIN [Concomitant]
  6. PREVALITE [Concomitant]
  7. MELATONIN [Concomitant]
  8. SERTRALINE [Concomitant]
  9. DICYCLOMINE [Concomitant]
  10. FLORASTOR [Concomitant]
  11. ACIDOPHILUS [Concomitant]
  12. MIRAPEX [Concomitant]
  13. ALLOPURINOL [Concomitant]
  14. FEXOFENADINE [Concomitant]
  15. OMEPRAZOLE [Concomitant]
  16. GABAPENTIN [Concomitant]
  17. ASPIRIN [Concomitant]

REACTIONS (1)
  - ANOSMIA [None]
